FAERS Safety Report 7954306-X (Version None)
Quarter: 2011Q4

REPORT INFORMATION
  Report Type: 
  Country: None (occurrence: None)
  Receive Date: 20111129
  Receipt Date: 20111121
  Transmission Date: 20120403
  Serious: Yes (Hospitalization)
  Sender: FDA-Public Use
  Company Number: 2006-149909-NL

PATIENT
  Age: 44 Year
  Sex: Female
  Weight: 99.8 kg

DRUGS (1)
  1. NUVARING [Suspect]
     Indication: CONTRACEPTION
     Dates: start: 20060101, end: 20061021

REACTIONS (16)
  - ANGINA UNSTABLE [None]
  - DYSLIPIDAEMIA [None]
  - TREATMENT NONCOMPLIANCE [None]
  - MITRAL VALVE INCOMPETENCE [None]
  - CORONARY ARTERY DISEASE [None]
  - MYOCARDIAL INFARCTION [None]
  - CORONARY ARTERY STENOSIS [None]
  - DYSPEPSIA [None]
  - CARDIAC FLUTTER [None]
  - PALPITATIONS [None]
  - HYPERTENSION [None]
  - VENTRICULAR TACHYCARDIA [None]
  - CARDIOMYOPATHY [None]
  - PRESYNCOPE [None]
  - PAIN [None]
  - LYME DISEASE [None]
